FAERS Safety Report 4752627-5 (Version None)
Quarter: 2005Q3

REPORT INFORMATION
  Report Type: 
  Country: None (occurrence: None)
  Receive Date: 20050824
  Receipt Date: 20050813
  Transmission Date: 20060218
  Serious: Yes (Hospitalization, Other)
  Sender: FDA-Public Use
  Company Number: 2005089337

PATIENT
  Age: 76 Year
  Sex: Male
  Weight: 108.8633 kg

DRUGS (8)
  1. CADUET [Suspect]
     Indication: ILL-DEFINED DISORDER
     Dosage: 5/10 MG, ORAL
     Route: 048
     Dates: start: 20050101, end: 20050601
  2. NORVASC [Suspect]
     Indication: HYPERTENSION
     Dosage: (5 MG), ORAL
     Route: 048
  3. CELEBREX [Suspect]
     Indication: ARTHRITIS
     Dosage: 100 MG (100 MG, 1 IN  1 D), ORAL
     Route: 048
     Dates: start: 20050101, end: 20050101
  4. LIPITOR [Suspect]
     Indication: ILL-DEFINED DISORDER
     Dosage: 10 MG (1 IN 1 D)
  5. ATENOLOL [Concomitant]
  6. TEMAZEPAM [Concomitant]
  7. ACETYLSALICYLIC ACID SRT [Concomitant]
  8. POTASSIUM CHLORIDE [Concomitant]

REACTIONS (11)
  - CHRONIC OBSTRUCTIVE PULMONARY DISEASE [None]
  - CORONARY ARTERY DISEASE [None]
  - DRUG PRESCRIBING ERROR [None]
  - EPISTAXIS [None]
  - FEAR [None]
  - HYPERLIPIDAEMIA [None]
  - HYPERTENSION [None]
  - RENAL FAILURE CHRONIC [None]
  - SELF-MEDICATION [None]
  - SKIN CANCER [None]
  - TREATMENT NONCOMPLIANCE [None]
